FAERS Safety Report 9219815 (Version 1)
Quarter: 2013Q1

REPORT INFORMATION
  Report Type: Spontaneous
  Country: US (occurrence: None)
  Receive Date: 20120828
  Receipt Date: 20120828
  Transmission Date: 20140127
  Serious: Yes (Other)
  Sender: FDA-Public Use
  Company Number: 2012BAX004181

PATIENT
  Age: 37 Year
  Sex: Female
  Weight: 118 kg

DRUGS (4)
  1. GAAMMGARD LIQUID (IMMUNOGLOBIN, NORMAL HUMAN) (SOLUTION FOR INFUSION) [Suspect]
     Indication: IMMUNODEFICIENCY COMMON VARIABLE
     Route: 042
     Dates: start: 20120426
  2. BENADRYL (DIPHENHYDRAMINE PHENYLPROPANOLAMINE) (DIPHENHYDRAMINE PHENYLPROPANOLAMINE) [Concomitant]
  3. DOXYCYCLINE (DOXYCYCLINE) (DOXYCYCLINE) [Concomitant]
  4. FLONASE (FLUTICASONE PROPIONATE) [Concomitant]

REACTIONS (9)
  - Anaphylactic reaction [None]
  - Transfusion reaction [None]
  - Chest discomfort [None]
  - Flushing [None]
  - Nausea [None]
  - Vomiting [None]
  - Blood pressure decreased [None]
  - Eye pruritus [None]
  - Lacrimation increased [None]
